FAERS Safety Report 24553284 (Version 1)
Quarter: 2024Q4

REPORT INFORMATION
  Report Type: Spontaneous
  Country: GB (occurrence: GB)
  Receive Date: 20241028
  Receipt Date: 20241028
  Transmission Date: 20250114
  Serious: Yes (Life-Threatening, Hospitalization, Disabling, Other)
  Sender: HETERO
  Company Number: None

PATIENT
  Age: 21 Year
  Sex: Male
  Weight: 100 kg

DRUGS (1)
  1. SUGAMMADEX [Suspect]
     Active Substance: SUGAMMADEX
     Indication: Adverse drug reaction
     Dosage: 200 MILLIGRAM
     Route: 065
     Dates: start: 20240522, end: 20240522

REACTIONS (2)
  - Brain injury [Unknown]
  - Anaphylactic reaction [Recovered/Resolved with Sequelae]

NARRATIVE: CASE EVENT DATE: 20240522
